FAERS Safety Report 5159132-5 (Version None)
Quarter: 2006Q4

REPORT INFORMATION
  Report Type: 
  Country: None (occurrence: None)
  Receive Date: 20061128
  Receipt Date: 20060922
  Transmission Date: 20070319
  Serious: Yes (Disabling)
  Sender: FDA-Public Use
  Company Number: GB-GILEAD-2006-0010269

PATIENT
  Sex: Male
  Weight: 63 kg

DRUGS (3)
  1. VIREAD [Suspect]
     Route: 048
     Dates: start: 20030722, end: 20060605
  2. EFAVIRENZ [Concomitant]
     Route: 048
     Dates: start: 20030722
  3. LAMIVUDINE [Concomitant]
     Route: 048
     Dates: start: 20030722

REACTIONS (4)
  - BLOOD CREATININE INCREASED [None]
  - BLOOD PHOSPHORUS DECREASED [None]
  - BONE PAIN [None]
  - URINARY TRACT INFECTION [None]
